FAERS Safety Report 12992495 (Version 1)
Quarter: 2016Q4

REPORT INFORMATION
  Report Type: Spontaneous
  Country: US (occurrence: US)
  Receive Date: 20161202
  Receipt Date: 20161202
  Transmission Date: 20170207
  Serious: Yes (Death, Life-Threatening, Hospitalization, Other)
  Sender: FDA-Public Use
  Company Number: US-BRISTOL-MYERS SQUIBB COMPANY-BMS-2016-100533

PATIENT
  Age: 58 Year
  Sex: Male

DRUGS (6)
  1. AVASTIN                            /00848101/ [Suspect]
     Active Substance: SIMVASTATIN
     Indication: MALIGNANT GLIOMA
     Dosage: 5 MG/KG, UNK
     Route: 042
     Dates: start: 20160809, end: 20160830
  2. CCNU [Suspect]
     Active Substance: LOMUSTINE
     Indication: MALIGNANT GLIOMA
     Dosage: 150 MG, QD
     Route: 048
     Dates: start: 20160802
  3. VINCRISTINE [Suspect]
     Active Substance: VINCRISTINE
     Indication: MALIGNANT GLIOMA
     Dosage: 2 MG, UNK
     Route: 042
     Dates: start: 20160809, end: 20160830
  4. OPDIVO [Suspect]
     Active Substance: NIVOLUMAB
     Indication: MALIGNANT GLIOMA
     Dosage: 3 MG/KG, UNK
     Route: 065
     Dates: start: 20160929, end: 20161013
  5. MATULANE [Suspect]
     Active Substance: PROCARBAZINE HYDROCHLORIDE
     Indication: MALIGNANT GLIOMA
     Dosage: 150 MG, QD
     Route: 048
     Dates: start: 20160809, end: 20160830
  6. AVASTIN                            /00848101/ [Suspect]
     Active Substance: SIMVASTATIN
     Indication: PRODUCT USED FOR UNKNOWN INDICATION
     Dosage: 1100 MG, UNK
     Route: 065
     Dates: start: 201609, end: 201610

REACTIONS (12)
  - Deep vein thrombosis [Unknown]
  - Rectal haemorrhage [Unknown]
  - Biopsy bone marrow [Unknown]
  - Neutropenia [Recovered/Resolved]
  - Immune thrombocytopenic purpura [Unknown]
  - Malignant neoplasm progression [Unknown]
  - Platelet transfusion [Unknown]
  - Packed red blood cell transfusion [Unknown]
  - Anaemia [Unknown]
  - Product use issue [Unknown]
  - Haemorrhoid operation [Unknown]
  - Acute hepatic failure [Fatal]

NARRATIVE: CASE EVENT DATE: 20160902
